FAERS Safety Report 20773606 (Version 4)
Quarter: 2022Q2

REPORT INFORMATION
  Report Type: Report from Study
  Country: MX (occurrence: MX)
  Receive Date: 20220502
  Receipt Date: 20220621
  Transmission Date: 20220721
  Serious: Yes (Hospitalization, Other)
  Sender: FDA-Public Use
  Company Number: MX-NOVARTISPH-NVSC2022MX075217

PATIENT
  Age: 37 Year
  Sex: Female

DRUGS (1)
  1. TASIGNA [Suspect]
     Active Substance: NILOTINIB
     Indication: Chronic myeloid leukaemia
     Dosage: UNK
     Route: 048
     Dates: end: 20220521

REACTIONS (8)
  - Haemoglobin decreased [Unknown]
  - General physical health deterioration [Unknown]
  - Arthralgia [Unknown]
  - Bone pain [Unknown]
  - Platelet count decreased [Unknown]
  - Weight increased [Unknown]
  - Weight decreased [Unknown]
  - Asthenia [Unknown]

NARRATIVE: CASE EVENT DATE: 20211101
